FAERS Safety Report 8456279-2 (Version None)
Quarter: 2012Q2

REPORT INFORMATION
  Report Type: 
  Country: None (occurrence: None)
  Receive Date: 20120621
  Receipt Date: 20120611
  Transmission Date: 20120825
  Serious: Yes (Hospitalization)
  Sender: FDA-Public Use
  Company Number: US-BAYER-2012-053388

PATIENT
  Age: 23 Year
  Sex: Female

DRUGS (10)
  1. YAZ [Suspect]
     Indication: ACNE
  2. YASMIN [Suspect]
     Dosage: UNK
     Dates: start: 20090501, end: 20090531
  3. DROSPIRENONE AND ETHINYL ESTRADIOL [Suspect]
     Dosage: UNK
     Dates: start: 20090501, end: 20090531
  4. TRAMADOL HCL [Concomitant]
     Dosage: UNK
     Dates: start: 20090328
  5. LAMICTAL [Concomitant]
     Indication: BIPOLAR DISORDER
     Dosage: 250 MG,DAILY
  6. YAZ [Suspect]
     Indication: CONTRACEPTION
     Dosage: UNK
     Dates: start: 20090501, end: 20090531
  7. YAZ [Suspect]
     Indication: MENSTRUAL CYCLE MANAGEMENT
  8. BACLOFEN [Concomitant]
     Dosage: UNK
     Dates: start: 20090328
  9. OXYCODONE HCL [Concomitant]
  10. ADDERALL 5 [Concomitant]
     Indication: ATTENTION DEFICIT/HYPERACTIVITY DISORDER
     Dosage: 60 MG, BID

REACTIONS (6)
  - PAIN [None]
  - PULMONARY EMBOLISM [None]
  - GENERAL PHYSICAL HEALTH DETERIORATION [None]
  - INJURY [None]
  - EMOTIONAL DISTRESS [None]
  - ANXIETY [None]
